FAERS Safety Report 4283703-1 (Version None)
Quarter: 2004Q1

REPORT INFORMATION
  Report Type: 
  Country: None (occurrence: None)
  Receive Date: 20040202
  Receipt Date: 20040123
  Transmission Date: 20041129
  Serious: Yes (Hospitalization)
  Sender: FDA-Public Use
  Company Number: WAES 0401SWE00017

PATIENT
  Age: 66 Year
  Sex: Female

DRUGS (2)
  1. ASPIRIN [Suspect]
     Route: 048
     Dates: start: 20030101, end: 20031030
  2. VIOXX [Suspect]
     Route: 048
     Dates: start: 20030101, end: 20031015

REACTIONS (5)
  - ANAEMIA [None]
  - DUODENAL ULCER [None]
  - FAECES DISCOLOURED [None]
  - FATIGUE [None]
  - HELICOBACTER PYLORI IDENTIFICATION TEST POSITIVE [None]
